FAERS Safety Report 4839782-3 (Version None)
Quarter: 2005Q4

REPORT INFORMATION
  Report Type: 
  Country: None (occurrence: None)
  Receive Date: 20051129
  Receipt Date: 20050907
  Transmission Date: 20060501
  Serious: No
  Sender: FDA-Public Use
  Company Number: US-GLAXOSMITHKLINE-A0573316A

PATIENT
  Sex: Female

DRUGS (4)
  1. WELLBUTRIN SR [Suspect]
     Indication: BIPOLAR DISORDER
     Dosage: 300MG TWICE PER DAY
     Route: 048
     Dates: start: 20040101
  2. ANESTHESIA [Concomitant]
  3. MORPHINE [Concomitant]
  4. PERCOCET [Concomitant]

REACTIONS (1)
  - DRUG INTERACTION [None]
